FAERS Safety Report 5897925-7 (Version None)
Quarter: 2008Q3

REPORT INFORMATION
  Report Type: 
  Country: None (occurrence: None)
  Receive Date: 20080925
  Receipt Date: 20080918
  Transmission Date: 20090109
  Serious: Yes (Other)
  Sender: FDA-Public Use
  Company Number: GB-TEVA-177654ISR

PATIENT
  Age: 48 Year
  Sex: Female

DRUGS (5)
  1. COPAXONE [Suspect]
     Indication: MULTIPLE SCLEROSIS
     Route: 058
     Dates: start: 20060501, end: 20080601
  2. BACLOFEN [Concomitant]
     Indication: MULTIPLE SCLEROSIS
     Dates: start: 20071001
  3. GABAPENTIN [Concomitant]
     Indication: MULTIPLE SCLEROSIS
     Dates: start: 20010101
  4. IBUPROFEN [Concomitant]
     Indication: MULTIPLE SCLEROSIS
     Dates: start: 20080501
  5. ZOLPIDEM [Concomitant]
     Indication: INSOMNIA
     Dates: start: 20050101

REACTIONS (1)
  - SCAR [None]
